FAERS Safety Report 5859221-3 (Version None)
Quarter: 2008Q3

REPORT INFORMATION
  Report Type: 
  Country: None (occurrence: None)
  Receive Date: 20080826
  Receipt Date: 20080826
  Transmission Date: 20090109
  Serious: No
  Sender: FDA-Public Use
  Company Number: None

PATIENT
  Age: 50 Year
  Sex: Female
  Weight: 65.7716 kg

DRUGS (5)
  1. LEVAQUIN [Suspect]
     Indication: BRONCHITIS
     Dosage: 10 DAYS 2X DAY
     Dates: start: 19990101, end: 20070101
  2. LEVAQUIN [Suspect]
     Indication: SINUSITIS
     Dosage: 10 DAYS 2X DAY
     Dates: start: 19990101, end: 20070101
  3. CIPRO [Suspect]
     Indication: BRONCHITIS
     Dosage: 10 DAYS 2 X DAY
     Dates: start: 19900101, end: 20070101
  4. CIPRO [Suspect]
     Indication: SINUSITIS
     Dosage: 10 DAYS 2 X DAY
     Dates: start: 19900101, end: 20070101
  5. CIPRO [Suspect]
     Indication: SKIN INFECTION
     Dosage: 10 DAYS 2 X DAY
     Dates: start: 19900101, end: 20070101

REACTIONS (3)
  - ARTHRALGIA [None]
  - ROTATOR CUFF SYNDROME [None]
  - TENDONITIS [None]
